FAERS Safety Report 24881686 (Version 1)
Quarter: 2025Q1

REPORT INFORMATION
  Report Type: Spontaneous
  Country: UY (occurrence: UY)
  Receive Date: 20250124
  Receipt Date: 20250124
  Transmission Date: 20250408
  Serious: Yes (Hospitalization, Other)
  Sender: Steriscience PTE
  Company Number: UY-STERISCIENCE B.V.-2025-ST-000097

PATIENT
  Age: 9 Year
  Sex: Male

DRUGS (27)
  1. MEROPENEM [Suspect]
     Active Substance: MEROPENEM
     Indication: Antibiotic therapy
     Route: 065
     Dates: start: 2022
  2. MEROPENEM [Suspect]
     Active Substance: MEROPENEM
     Indication: Achromobacter infection
     Dosage: 120 MG/KG/DAY Q3H
     Route: 065
  3. MEROPENEM [Suspect]
     Active Substance: MEROPENEM
     Indication: Respiratory tract infection
  4. VANCOMYCIN [Suspect]
     Active Substance: VANCOMYCIN
     Indication: Achromobacter infection
     Route: 065
  5. VANCOMYCIN [Suspect]
     Active Substance: VANCOMYCIN
     Indication: Respiratory tract infection
  6. PIPERACILLIN SODIUM\TAZOBACTAM SODIUM [Suspect]
     Active Substance: PIPERACILLIN SODIUM\TAZOBACTAM SODIUM
     Indication: Antibiotic therapy
     Route: 065
     Dates: start: 202208
  7. AMIKACIN [Suspect]
     Active Substance: AMIKACIN
     Indication: Antibiotic therapy
     Route: 065
     Dates: start: 202208
  8. AMIKACIN [Suspect]
     Active Substance: AMIKACIN
     Route: 065
     Dates: start: 2022
  9. COLISTIN [Suspect]
     Active Substance: COLISTIN
     Indication: Achromobacter infection
     Dosage: 5 MG/KG/DAY, Q8H
     Route: 065
  10. COLISTIN [Suspect]
     Active Substance: COLISTIN
     Indication: Respiratory tract infection
  11. LEVOFLOXACIN [Suspect]
     Active Substance: LEVOFLOXACIN
     Indication: Achromobacter infection
     Route: 065
  12. LEVOFLOXACIN [Suspect]
     Active Substance: LEVOFLOXACIN
     Indication: Respiratory tract infection
  13. AZITHROMYCIN [Suspect]
     Active Substance: AZITHROMYCIN
     Indication: Achromobacter infection
     Route: 065
  14. AZITHROMYCIN [Suspect]
     Active Substance: AZITHROMYCIN
     Indication: Respiratory tract infection
  15. AMPHOTERICIN B [Suspect]
     Active Substance: AMPHOTERICIN B
     Indication: Achromobacter infection
     Route: 065
  16. AMPHOTERICIN B [Suspect]
     Active Substance: AMPHOTERICIN B
     Indication: Respiratory tract infection
  17. AVIBACTAM SODIUM\CEFTAZIDIME [Suspect]
     Active Substance: AVIBACTAM SODIUM\CEFTAZIDIME
     Indication: Achromobacter infection
     Route: 065
  18. AVIBACTAM SODIUM\CEFTAZIDIME [Suspect]
     Active Substance: AVIBACTAM SODIUM\CEFTAZIDIME
     Indication: Respiratory tract infection
  19. TIGECYCLINE [Suspect]
     Active Substance: TIGECYCLINE
     Indication: Achromobacter infection
     Route: 065
  20. TIGECYCLINE [Suspect]
     Active Substance: TIGECYCLINE
     Indication: Respiratory tract infection
  21. DOCETAXEL [Concomitant]
     Active Substance: DOCETAXEL
     Indication: Chronic myeloid leukaemia
     Route: 065
  22. CARBOPLATIN [Concomitant]
     Active Substance: CARBOPLATIN
     Indication: Chronic myeloid leukaemia
     Route: 065
  23. TRASTUZUMAB [Concomitant]
     Active Substance: TRASTUZUMAB
     Indication: Chronic myeloid leukaemia
     Route: 065
  24. PERTUZUMAB [Concomitant]
     Active Substance: PERTUZUMAB
     Indication: Chronic myeloid leukaemia
     Route: 065
  25. RITUXIMAB [Concomitant]
     Active Substance: RITUXIMAB
     Indication: Epstein-Barr virus infection reactivation
     Route: 065
  26. IMMUNE GLOBULIN NOS [Concomitant]
     Active Substance: IMMUNE GLOBULIN NOS
     Indication: Product used for unknown indication
     Route: 065
  27. ALBUMIN HUMAN [Concomitant]
     Active Substance: ALBUMIN HUMAN
     Indication: Septic shock
     Route: 065

REACTIONS (3)
  - Infection [Unknown]
  - Drug ineffective [Unknown]
  - Drug resistance [Unknown]
